FAERS Safety Report 17641039 (Version 1)
Quarter: 2020Q2

REPORT INFORMATION
  Report Type: Other
  Country: FR (occurrence: FR)
  Receive Date: 20200407
  Receipt Date: 20200407
  Transmission Date: 20200713
  Serious: Yes (Life-Threatening, Hospitalization)
  Sender: FDA-Public Use
  Company Number: FR-DENTSPLY-2020SCDP000123

PATIENT
  Age: 14 Year
  Sex: Female
  Weight: 40 kg

DRUGS (8)
  1. LIDOCAINE HYDROCHLORIDE AND EPINEPHRINE BITARTRATE [Suspect]
     Active Substance: EPINEPHRINE BITARTRATE\LIDOCAINE HYDROCHLORIDE
     Indication: PRODUCT USED FOR UNKNOWN INDICATION
     Dosage: 20 MILLIGRAM
     Route: 042
     Dates: start: 20191217, end: 20191217
  2. ROCURONIUM BROMIDE. [Suspect]
     Active Substance: ROCURONIUM BROMIDE
     Indication: GENERAL ANAESTHESIA
     Dosage: 20 MILLIGRAM
     Route: 042
     Dates: start: 20191217, end: 20191217
  3. PIPERACILLIN AND TAZOBACTAM [Suspect]
     Active Substance: PIPERACILLIN SODIUM\TAZOBACTAM SODIUM
     Indication: ANTIBIOTIC PROPHYLAXIS
     Dosage: 4 GRAM
     Route: 042
     Dates: start: 20191217, end: 20191217
  4. PROPACETAMOL [Suspect]
     Active Substance: PROPACETAMOL
     Indication: PERIOPERATIVE ANALGESIA
     Dosage: 1 GRAM
     Route: 042
     Dates: start: 20191217, end: 20191217
  5. NEFOPAM MEDISOL [Suspect]
     Active Substance: NEFOPAM HYDROCHLORIDE
     Indication: PERIOPERATIVE ANALGESIA
     Dosage: 20 MILLIGRAM
     Route: 042
     Dates: start: 20191217, end: 20191217
  6. PROPOFOL LIPURO [Suspect]
     Active Substance: PROPOFOL
     Indication: GENERAL ANAESTHESIA
     Dosage: 110 MILLIGRAM
     Route: 042
     Dates: start: 20191217, end: 20191217
  7. SUFENTANIL [Suspect]
     Active Substance: SUFENTANIL
     Indication: GENERAL ANAESTHESIA
     Dosage: 10 MICROGRAM
     Route: 042
     Dates: start: 20191217, end: 20191217
  8. ZYVOXID [Suspect]
     Active Substance: LINEZOLID
     Indication: ANTIBIOTIC PROPHYLAXIS
     Dosage: 600 MILLIGRAM
     Route: 042
     Dates: start: 20191217, end: 20191217

REACTIONS (1)
  - Type I hypersensitivity [Recovered/Resolved]

NARRATIVE: CASE EVENT DATE: 20191217
